FAERS Safety Report 5072313-4 (Version None)
Quarter: 2006Q3

REPORT INFORMATION
  Report Type: 
  Country: None (occurrence: None)
  Receive Date: 20060711
  Receipt Date: 20060317
  Transmission Date: 20061208
  Serious: Yes (Hospitalization)
  Sender: FDA-Public Use
  Company Number: 2006S1000060

PATIENT

DRUGS (2)
  1. CUBICIN [Suspect]
     Dates: end: 20060101
  2. CHEMOTHERAPY AGENTS [Concomitant]

REACTIONS (1)
  - RENAL FAILURE [None]
